FAERS Safety Report 4536986-4 (Version None)
Quarter: 2004Q4

REPORT INFORMATION
  Report Type: 
  Country: None (occurrence: None)
  Receive Date: 20041220
  Receipt Date: 20041209
  Transmission Date: 20050328
  Serious: Yes (Hospitalization)
  Sender: FDA-Public Use
  Company Number: STA-AE-04-MTX-538

PATIENT
  Age: 55 Year
  Sex: Male

DRUGS (4)
  1. METHOTREXATE [Suspect]
     Indication: RHEUMATOID ARTHRITIS
     Dosage: 15 MG 1ZXX PER 1 WK, ORAL
     Route: 048
     Dates: start: 19980403, end: 20040127
  2. PREDNISONE [Suspect]
     Dosage: 7 MG 1X PER 1 DAY, ORAL
     Route: 048
     Dates: start: 19980312
  3. ARAVA [Suspect]
     Indication: POLYARTHRITIS
     Dosage: 20 MG 1X PER 1 DAY, ORAL
     Route: 048
     Dates: start: 20010715, end: 20030515
  4. REMICADE [Suspect]
     Indication: POLYARTHRITIS
     Dosage: 0.3 G 10X PER 1 CYC, INTRAVENOUS
     Route: 042
     Dates: start: 20011015, end: 20030515

REACTIONS (3)
  - DISEASE RECURRENCE [None]
  - LYMPHOMA [None]
  - RHEUMATOID LUNG [None]
